FAERS Safety Report 10715797 (Version 1)
Quarter: 2015Q1

REPORT INFORMATION
  Report Type: Spontaneous
  Country: US (occurrence: None)
  Receive Date: 20150108
  Receipt Date: 20150108
  Transmission Date: 20150721
  Serious: Yes (Hospitalization)
  Sender: FDA-Public Use
  Company Number: 417762

PATIENT
  Age: 77 Year
  Sex: Female

DRUGS (1)
  1. LEVEMIR [Suspect]
     Active Substance: INSULIN DETEMIR
     Indication: DIABETES MELLITUS
     Route: 058
     Dates: start: 201404, end: 201407

REACTIONS (1)
  - Angioedema [None]

NARRATIVE: CASE EVENT DATE: 201406
